FAERS Safety Report 15375795 (Version 1)
Quarter: 2018Q3

REPORT INFORMATION
  Report Type: Spontaneous
  Country: NO (occurrence: NO)
  Receive Date: 20180912
  Receipt Date: 20180912
  Transmission Date: 20181010
  Serious: Yes (Death)
  Sender: FDA-Public Use
  Company Number: NO-SAKK-2018SA249889AA

PATIENT
  Sex: Female

DRUGS (5)
  1. METEX [METHOTREXATE SODIUM] [Concomitant]
     Dosage: 15 MG, QW
     Route: 058
  2. ORENCIA [Suspect]
     Active Substance: ABATACEPT
     Indication: RHEUMATOID ARTHRITIS
     Dosage: 125 MG, QD
     Route: 058
  3. ARAVA [Suspect]
     Active Substance: LEFLUNOMIDE
     Indication: RHEUMATOID ARTHRITIS
     Dosage: 20 MG, QD
     Route: 048
  4. BENEPALI [Suspect]
     Active Substance: ETANERCEPT
     Indication: RHEUMATOID ARTHRITIS
     Dosage: 50 UNK, QD
     Route: 058
  5. PREDNISOLON [PREDNISOLONE] [Concomitant]
     Dosage: VARYING DOSES
     Route: 045

REACTIONS (2)
  - Mycobacterium avium complex infection [Fatal]
  - Death [Fatal]

NARRATIVE: CASE EVENT DATE: 2016
